FAERS Safety Report 5126399-9 (Version None)
Quarter: 2006Q3

REPORT INFORMATION
  Report Type: 
  Country: None (occurrence: None)
  Receive Date: 20060830
  Receipt Date: 20051221
  Transmission Date: 20061208
  Serious: Yes (Life-Threatening, Hospitalization)
  Sender: FDA-Public Use
  Company Number: 200513021BWH

PATIENT
  Age: 77 Year
  Sex: Male
  Weight: 22.6799 kg

DRUGS (17)
  1. TRASYLOL [Suspect]
     Indication: CORONARY ARTERY BYPASS
     Dosage: SEE IMAGE
     Route: 042
     Dates: start: 20051207
  2. TRASYLOL [Suspect]
     Indication: CORONARY ARTERY BYPASS
     Dosage: SEE IMAGE
     Route: 042
     Dates: start: 20051207
  3. ALTACE [Concomitant]
  4. LIPITOR [Concomitant]
  5. LACTATED RINGER'S [Concomitant]
  6. HEPARIN [Concomitant]
  7. MANNITOL [Concomitant]
  8. PROPOFOL [Concomitant]
  9. FENTANYL [Concomitant]
  10. VERSED [Concomitant]
  11. LOPRESSOR [Concomitant]
  12. ANCEF [Concomitant]
  13. NITROGLYCERIN [Concomitant]
  14. DOBUTAMINE HCL [Concomitant]
  15. NEO-SYNEPHRINE [Concomitant]
  16. NAHC03 [Concomitant]
  17. XYLOCAINE [Concomitant]

REACTIONS (1)
  - BLOOD CREATININE INCREASED [None]
